FAERS Safety Report 25104771 (Version 1)
Quarter: 2025Q1

REPORT INFORMATION
  Report Type: Spontaneous
  Country: FR (occurrence: FR)
  Receive Date: 20250321
  Receipt Date: 20250321
  Transmission Date: 20250409
  Serious: Yes (Other)
  Sender: AUROBINDO
  Company Number: FR-SA-2016SA125715

PATIENT
  Age: 28 Year
  Sex: Female

DRUGS (9)
  1. LAMOTRIGINE [Suspect]
     Active Substance: LAMOTRIGINE
     Indication: Epilepsy
     Dosage: 2 DOSAGE FORM, ONCE A DAY (LAMICTAL 25 2 DF, QD IN THE MORNING)
     Route: 065
  2. LAMOTRIGINE [Suspect]
     Active Substance: LAMOTRIGINE
     Dosage: 1 DOSAGE FORM, ONCE A DAY (LAMICTAL 100 1 DF, QD IN THE EVENING)
     Route: 065
  3. VALPROATE SODIUM [Suspect]
     Active Substance: VALPROATE SODIUM
     Indication: Epilepsy
     Dosage: 1 DOSAGE FORM, TWO TIMES A DAY (1 DF, BID)
     Route: 048
     Dates: end: 2006
  4. ZONEGRAN [Suspect]
     Active Substance: ZONISAMIDE
     Indication: Epilepsy
     Route: 065
  5. TEGRETOL [Concomitant]
     Active Substance: CARBAMAZEPINE
     Indication: Epilepsy
     Dosage: 1.5 DOSAGE FORM, TWO TIMES A DAY (1.5 DF, BID)
     Route: 065
     Dates: start: 1994
  6. PHENYTOIN [Concomitant]
     Active Substance: PHENYTOIN
     Indication: Epilepsy
     Dosage: 1 DOSAGE FORM, TWO TIMES A DAY (1 DF, BID)
     Route: 065
  7. PHENYTOIN [Concomitant]
     Active Substance: PHENYTOIN
     Dosage: 0.5 DOSAGE FORM, TWO TIMES A DAY (0.5 DF, BID)
     Route: 065
  8. TOPIRAMATE [Concomitant]
     Active Substance: TOPIRAMATE
     Indication: Epilepsy
     Route: 065
     Dates: start: 2007
  9. RIVOTRIL [Concomitant]
     Active Substance: CLONAZEPAM
     Indication: Epilepsy
     Route: 065

REACTIONS (11)
  - Epilepsy [Not Recovered/Not Resolved]
  - Loss of consciousness [Not Recovered/Not Resolved]
  - Road traffic accident [Not Recovered/Not Resolved]
  - Insomnia [Not Recovered/Not Resolved]
  - Product dose omission issue [Not Recovered/Not Resolved]
  - Speech disorder [Unknown]
  - Weight increased [Unknown]
  - Platelet count decreased [Unknown]
  - Confusional state [Unknown]
  - Female sterilisation [Unknown]
  - Maternal exposure during pregnancy [Unknown]

NARRATIVE: CASE EVENT DATE: 20000524
